FAERS Safety Report 25931930 (Version 1)
Quarter: 2025Q4

REPORT INFORMATION
  Report Type: Spontaneous
  Country: ZA (occurrence: ZA)
  Receive Date: 20251016
  Receipt Date: 20251016
  Transmission Date: 20260118
  Serious: Yes (Other)
  Sender: SANOFI AVENTIS
  Company Number: ZA-SA-2025SA306504

PATIENT
  Sex: Female

DRUGS (4)
  1. LEFLUNOMIDE [Suspect]
     Active Substance: LEFLUNOMIDE
     Dosage: 20 MG, QD
     Dates: start: 200501
  2. CHLOROQUINE [Concomitant]
     Active Substance: CHLOROQUINE
     Dosage: 200MG (5X WEEK)
     Dates: start: 201701
  3. SIMPONI [Concomitant]
     Active Substance: GOLIMUMAB
     Dosage: 50 MG, Q4W
     Dates: start: 201811
  4. SULFASALAZINE [Concomitant]
     Active Substance: SULFASALAZINE
     Dosage: 1 G, BID
     Dates: start: 201901

REACTIONS (11)
  - Hypothyroidism [Unknown]
  - Encephalitis [Unknown]
  - Synovectomy [Unknown]
  - Arthrodesis [Unknown]
  - Dyslipidaemia [Unknown]
  - Arthritis [Unknown]
  - Rheumatoid factor increased [Unknown]
  - Anti-cyclic citrullinated peptide antibody positive [Unknown]
  - Herpes zoster [Unknown]
  - Tenoplasty [Unknown]
  - Drug ineffective [Unknown]
